FAERS Safety Report 25855133 (Version 1)
Quarter: 2025Q3

REPORT INFORMATION
  Report Type: Spontaneous
  Country: EU (occurrence: EU)
  Receive Date: 20250927
  Receipt Date: 20250927
  Transmission Date: 20251021
  Serious: Yes (Other)
  Sender: CELLTRION
  Company Number: EU-SANDOZ-SDZ2025SK065121

PATIENT

DRUGS (3)
  1. INFLIXIMAB [Suspect]
     Active Substance: INFLIXIMAB
     Indication: Product used for unknown indication
     Route: 065
  2. USTEKINUMAB [Suspect]
     Active Substance: USTEKINUMAB
     Indication: Product used for unknown indication
     Route: 065
  3. IMURAN [Suspect]
     Active Substance: AZATHIOPRINE
     Indication: Product used for unknown indication
     Route: 065

REACTIONS (9)
  - Angioimmunoblastic T-cell lymphoma [Unknown]
  - Leukopenia [Unknown]
  - Pneumonia [Unknown]
  - Arthropathy [Unknown]
  - Cough [Unknown]
  - Fistula [Unknown]
  - Supraventricular tachycardia [Unknown]
  - Hypertension [Unknown]
  - Dyspepsia [Unknown]
